FAERS Safety Report 23240617 (Version 2)
Quarter: 2023Q4

REPORT INFORMATION
  Report Type: Spontaneous
  Country: US (occurrence: US)
  Receive Date: 20231129
  Receipt Date: 20231206
  Transmission Date: 20240110
  Serious: No
  Sender: FDA-Public Use
  Company Number: US-LUNDBECK-DKLU3069826

PATIENT
  Age: 54 Year
  Sex: Female

DRUGS (1)
  1. VYEPTI [Suspect]
     Active Substance: EPTINEZUMAB-JJMR
     Indication: Migraine
     Route: 041
     Dates: start: 20231026

REACTIONS (8)
  - Fatigue [Unknown]
  - Vertigo [Not Recovered/Not Resolved]
  - Fall [Unknown]
  - Head injury [Unknown]
  - Migraine [Unknown]
  - Nausea [Unknown]
  - Weight decreased [Unknown]
  - Neck pain [Unknown]
